FAERS Safety Report 13008994 (Version 2)
Quarter: 2017Q1

REPORT INFORMATION
  Report Type: Spontaneous
  Country: US (occurrence: US)
  Receive Date: 20161208
  Receipt Date: 20170105
  Transmission Date: 20170428
  Serious: Yes (Other)
  Sender: FDA-Public Use
  Company Number: US-PFIZER INC-2016565672

PATIENT
  Sex: Male

DRUGS (2)
  1. IBUPROFEN. [Suspect]
     Active Substance: IBUPROFEN
     Dosage: LOWER DOSE
  2. IBUPROFEN. [Suspect]
     Active Substance: IBUPROFEN
     Dosage: 3200 MG, UNK (TOOK FOUR 800MG)

REACTIONS (8)
  - Impaired quality of life [Unknown]
  - Neuropathy peripheral [Unknown]
  - Pain [Unknown]
  - Bedridden [Unknown]
  - Accidental overdose [Unknown]
  - Dermatitis [Unknown]
  - Thinking abnormal [Unknown]
  - Photosensitivity reaction [Unknown]
